FAERS Safety Report 9289079 (Version 2)
Quarter: 2013Q3

REPORT INFORMATION
  Report Type: Spontaneous
  Country: US (occurrence: US)
  Receive Date: 20130514
  Receipt Date: 20130702
  Transmission Date: 20140515
  Serious: No
  Sender: FDA-Public Use
  Company Number: US-PFIZER INC-2013146899

PATIENT
  Age: 56 Year
  Sex: Female
  Weight: 90.7 kg

DRUGS (3)
  1. ACCUPRIL [Suspect]
     Indication: HYPERTENSION
     Dosage: 20 MG, 2X/DAY
  2. COREG [Concomitant]
     Dosage: 25 MG, 1X/DAY
  3. EXFORGE [Concomitant]
     Dosage: 10/320 MG, 1X/DAY

REACTIONS (3)
  - Influenza like illness [Recovered/Resolved]
  - Cough [Recovered/Resolved]
  - Somnolence [Unknown]
